FAERS Safety Report 7038314-1 (Version None)
Quarter: 2010Q4

REPORT INFORMATION
  Report Type: 
  Country: None (occurrence: None)
  Receive Date: 20101011
  Receipt Date: 20090915
  Transmission Date: 20110411
  Serious: No
  Sender: FDA-Public Use
  Company Number: US-PFIZER INC-2009264308

PATIENT
  Sex: Female

DRUGS (3)
  1. NEURONTIN [Suspect]
     Indication: HERPES ZOSTER
     Dosage: UNK
  2. PREDNISONE [Suspect]
     Indication: HERPES ZOSTER
  3. ACYCLOVIR SODIUM [Suspect]
     Indication: HERPES ZOSTER

REACTIONS (1)
  - DRUG INEFFECTIVE [None]
